FAERS Safety Report 15186324 (Version 1)
Quarter: 2018Q3

REPORT INFORMATION
  Report Type: Report from Study
  Country: US (occurrence: US)
  Receive Date: 20180723
  Receipt Date: 20180723
  Transmission Date: 20181010
  Serious: No
  Sender: FDA-Public Use
  Company Number: US-EXELIXIS-CABO-18012750

PATIENT
  Sex: Male

DRUGS (2)
  1. CABOMETYX [Suspect]
     Active Substance: CABOZANTINIB S-MALATE
     Indication: RENAL CANCER
     Dosage: 40 MG, QD
     Route: 048
  2. CABOMETYX [Suspect]
     Active Substance: CABOZANTINIB S-MALATE
     Dosage: 60 MG, QD
     Route: 048
     Dates: end: 20180423

REACTIONS (7)
  - Nausea [Unknown]
  - Hepatic enzyme increased [Recovered/Resolved]
  - Fatigue [Unknown]
  - Red blood cell count decreased [Recovered/Resolved]
  - Pallor [Unknown]
  - Palmar-plantar erythrodysaesthesia syndrome [Unknown]
  - Constipation [Unknown]
